FAERS Safety Report 21855433 (Version 1)
Quarter: 2023Q1

REPORT INFORMATION
  Report Type: Spontaneous
  Country: US (occurrence: None)
  Receive Date: 20230112
  Receipt Date: 20230112
  Transmission Date: 20230417
  Serious: Yes (Other)
  Sender: FDA-Public Use
  Company Number: None

PATIENT
  Age: 17 Year
  Sex: Male

DRUGS (1)
  1. HUMIRA [Suspect]
     Active Substance: ADALIMUMAB
     Dosage: OTHER FREQUENCY : EVERY 10 DAYS;?
     Route: 058

REACTIONS (3)
  - Injection site infection [None]
  - Abdominal wall cyst [None]
  - Staphylococcal infection [None]
